FAERS Safety Report 6121260-5 (Version None)
Quarter: 2009Q1

REPORT INFORMATION
  Report Type: 
  Country: None (occurrence: None)
  Receive Date: 20090317
  Receipt Date: 20090313
  Transmission Date: 20090719
  Serious: Yes (Hospitalization)
  Sender: FDA-Public Use
  Company Number: DE-EISAI MEDICAL RESEARCH-E2020-04284-SPO-DE

PATIENT
  Sex: Male
  Weight: 72 kg

DRUGS (2)
  1. ARICEPT [Suspect]
     Indication: DRUG USE FOR UNKNOWN INDICATION
     Route: 048
     Dates: start: 20071001, end: 20090201
  2. ARICEPT [Suspect]
     Route: 048
     Dates: start: 20090201, end: 20090201

REACTIONS (6)
  - ALTERED STATE OF CONSCIOUSNESS [None]
  - CEREBRAL ATROPHY [None]
  - COMMUNICATION DISORDER [None]
  - FALL [None]
  - LEUKOENCEPHALOPATHY [None]
  - SYNCOPE [None]
